FAERS Safety Report 8889328 (Version 1)
Quarter: 2012Q4

REPORT INFORMATION
  Report Type: Spontaneous
  Country: US (occurrence: None)
  Receive Date: 20121101
  Receipt Date: 20121101
  Transmission Date: 20130627
  Serious: Yes (Life-Threatening, Disabling, Other)
  Sender: FDA-Public Use
  Company Number: None

PATIENT
  Sex: Female
  Weight: 88.91 kg

DRUGS (1)
  1. THYROLAR [Suspect]
     Indication: THYROID NEOPLASM
     Dosage: thyrolar II gr  2xday mouth
     Route: 048
     Dates: end: 201001

REACTIONS (5)
  - Palpitations [None]
  - Bone loss [None]
  - Asthenia [None]
  - Temperature intolerance [None]
  - Product substitution issue [None]
